FAERS Safety Report 24900766 (Version 13)
Quarter: 2025Q4

REPORT INFORMATION
  Report Type: Spontaneous
  Country: JP (occurrence: JP)
  Receive Date: 20250129
  Receipt Date: 20251010
  Transmission Date: 20260118
  Serious: Yes (Death, Hospitalization, Other)
  Sender: ABBVIE
  Company Number: JP-ABBVIE-6109212

PATIENT
  Age: 41 Year
  Sex: Male
  Weight: 49 kg

DRUGS (5)
  1. RINVOQ [Suspect]
     Active Substance: UPADACITINIB
     Indication: Colitis ulcerative
     Dosage: TIME INTERVAL: 0.33333333 DAYS: FORM STRENGTH:15 MILLIGRAM?DOSE :45 MILLIGRAM
     Route: 048
     Dates: start: 20230108
  2. RINVOQ [Suspect]
     Active Substance: UPADACITINIB
     Indication: Colitis ulcerative
     Dosage: FORM STRENGTH: 15 MILLIGRAM
     Route: 048
     Dates: start: 20230430, end: 20230517
  3. RINVOQ [Suspect]
     Active Substance: UPADACITINIB
     Indication: Colitis ulcerative
     Dosage: 30 MILLIGRAM?LAST ADMIN DATE APR 2023?FORM STRENGTH:15 MILLIGRAM
     Route: 048
     Dates: start: 20230426
  4. Clostridium butyricum [Concomitant]
     Indication: Product used for unknown indication
     Dosage: TIME INTERVAL: 0.33333333 DAYS: 9 TABLETS
     Route: 048
  5. MESALAMINE [Concomitant]
     Active Substance: MESALAMINE
     Indication: Product used for unknown indication
     Dosage: 4800 MILLIGRAM
     Route: 048

REACTIONS (11)
  - Colon cancer [Fatal]
  - Metastases to bone [Unknown]
  - Colitis ulcerative [Unknown]
  - C-reactive protein increased [Recovering/Resolving]
  - Coronavirus infection [Recovering/Resolving]
  - Vomiting [Unknown]
  - Metastases to liver [Fatal]
  - Abdominal pain [Unknown]
  - Large intestinal stenosis [Unknown]
  - Febrile neutropenia [Unknown]
  - Large intestine perforation [Fatal]

NARRATIVE: CASE EVENT DATE: 20230501
